FAERS Safety Report 18909124 (Version 1)
Quarter: 2021Q1

REPORT INFORMATION
  Report Type: Spontaneous
  Country: US (occurrence: US)
  Receive Date: 20210217
  Receipt Date: 20210217
  Transmission Date: 20210420
  Serious: No
  Sender: FDA-Public Use
  Company Number: None

PATIENT
  Age: 68 Year
  Sex: Female
  Weight: 68.95 kg

DRUGS (3)
  1. RINVOQ [Suspect]
     Active Substance: UPADACITINIB
     Indication: RHEUMATOID ARTHRITIS
     Dosage: ?          OTHER DOSE:1 TABLET ;?
     Route: 048
     Dates: start: 202012
  2. RINVOQ [Suspect]
     Active Substance: UPADACITINIB
     Indication: SYSTEMIC SCLERODERMA
     Dosage: ?          OTHER DOSE:1 TABLET ;?
     Route: 048
     Dates: start: 202012
  3. RINVOQ [Suspect]
     Active Substance: UPADACITINIB
     Indication: CREST SYNDROME
     Dosage: ?          OTHER DOSE:1 TABLET ;?
     Route: 048
     Dates: start: 202012

REACTIONS (1)
  - SARS-CoV-2 test positive [None]
